FAERS Safety Report 6792909-9 (Version None)
Quarter: 2010Q2

REPORT INFORMATION
  Report Type: 
  Country: None (occurrence: None)
  Receive Date: 20100624
  Receipt Date: 20081027
  Transmission Date: 20101027
  Serious: No
  Sender: FDA-Public Use
  Company Number: US-PFIZER INC-2008090859

PATIENT
  Sex: Male

DRUGS (2)
  1. XALATAN [Suspect]
  2. OPHTHALMOLOGICALS [Concomitant]
     Indication: TRACHOMA

REACTIONS (1)
  - VITREOUS FLOATERS [None]
